FAERS Safety Report 8920701 (Version 1)
Quarter: 2012Q4

REPORT INFORMATION
  Report Type: 
  Country: US (occurrence: US)
  Receive Date: 20121122
  Receipt Date: 20121122
  Transmission Date: 20130627
  Serious: Yes (Disabling, Other)
  Sender: FDA-Public Use
  Company Number: US-ASTRAZENECA-2012SE86383

PATIENT
  Age: 12 Year
  Sex: Male

DRUGS (8)
  1. NEXIUM [Suspect]
     Route: 048
     Dates: start: 20100820
  2. DITROPAN XL [Concomitant]
     Dates: start: 20110502
  3. BACLOFEN [Concomitant]
     Dates: start: 20101004
  4. AMBIEN [Concomitant]
     Dates: start: 20110915
  5. ONDANSETRON [Concomitant]
     Dosage: 4 MG TAKE 1 TAB AT ONSET OF VOMITING AND MAY REPEAT IN 8 HOUR IF STILL NAUSEATED
     Dates: start: 20110915
  6. VALIUM [Concomitant]
     Indication: ANXIETY
     Dates: start: 20110613
  7. VALIUM [Concomitant]
     Indication: MUSCLE SPASMS
     Dates: start: 20110613
  8. ERGOCALCIFEROL [Concomitant]
     Dosage: 50000 UNIT CAPS TAKE 1 TABLET EACH WEEK FOR 8 WEEKS
     Dates: start: 20110915

REACTIONS (9)
  - Convulsion [Unknown]
  - Quadriplegia [Unknown]
  - Paralysis [Unknown]
  - Road traffic accident [Unknown]
  - Autonomic dysreflexia [Unknown]
  - Femur fracture [Unknown]
  - Osteoporosis [Unknown]
  - Multiple fractures [Unknown]
  - Off label use [Unknown]
